FAERS Safety Report 17790656 (Version 5)
Quarter: 2021Q4

REPORT INFORMATION
  Report Type: Spontaneous
  Country: US (occurrence: US)
  Receive Date: 20200515
  Receipt Date: 20211209
  Transmission Date: 20220304
  Serious: Yes (Hospitalization, Other)
  Sender: FDA-Public Use
  Company Number: US-SA-2020SA103192

PATIENT
  Age: 45 Year
  Sex: Male
  Weight: 77.098 kg

DRUGS (12)
  1. CEREZYME [Suspect]
     Active Substance: IMIGLUCERASE
     Indication: Gaucher^s disease
     Dosage: 6400 U, QOW
     Route: 041
     Dates: start: 20151202
  2. CEREZYME [Suspect]
     Active Substance: IMIGLUCERASE
     Indication: Lipidosis
  3. DIPHENHYDRAMINE HYDROCHLORIDE [Concomitant]
     Active Substance: DIPHENHYDRAMINE HYDROCHLORIDE
     Route: 065
  4. EPINEPHRINE [Concomitant]
     Active Substance: EPINEPHRINE
     Route: 065
  5. METFORMIN [Concomitant]
     Active Substance: METFORMIN HYDROCHLORIDE
     Route: 065
  6. LISINOPRIL [Concomitant]
     Active Substance: LISINOPRIL
     Route: 065
  7. LISINOPRIL [Concomitant]
     Active Substance: LISINOPRIL
  8. ASPIRIN [Concomitant]
     Active Substance: ASPIRIN
  9. TASIGNA [Concomitant]
     Active Substance: NILOTINIB
     Route: 065
  10. SODIUM CHLORIDE [Concomitant]
     Active Substance: SODIUM CHLORIDE
     Route: 065
  11. STERILE WATER [Concomitant]
     Active Substance: WATER
     Route: 065
  12. SODIUM CHLORIDE [Concomitant]
     Active Substance: SODIUM CHLORIDE
     Route: 065

REACTIONS (4)
  - COVID-19 [Recovered/Resolved]
  - SARS-CoV-2 test positive [Recovered/Resolved]
  - Infusion site extravasation [Unknown]
  - Erythema [Unknown]

NARRATIVE: CASE EVENT DATE: 20200406
